FAERS Safety Report 7611186-X (Version None)
Quarter: 2011Q3

REPORT INFORMATION
  Report Type: 
  Country: None (occurrence: None)
  Receive Date: 20110707
  Receipt Date: 20110623
  Transmission Date: 20111222
  Serious: Yes (Other)
  Sender: FDA-Public Use
  Company Number: 2011-00681

PATIENT
  Age: 57 Year
  Sex: Male
  Weight: 140.6151 kg

DRUGS (2)
  1. NORVASC [Suspect]
     Indication: HYPERTENSION
     Dosage: DAILY
     Dates: end: 20100101
  2. LISINOPRIL AND HYDROCHLOROTHIAZIDE [Suspect]
     Indication: HYPERTENSION
     Dosage: 20MG/25MG, DAILY, PER ORAL
     Route: 048
     Dates: start: 20060101, end: 20110623

REACTIONS (8)
  - FATIGUE [None]
  - FEELING ABNORMAL [None]
  - DRUG DOSE OMISSION [None]
  - POST PROCEDURAL INFECTION [None]
  - COELIAC DISEASE [None]
  - STAPHYLOCOCCAL INFECTION [None]
  - KNEE OPERATION [None]
  - HEADACHE [None]
